FAERS Safety Report 25336608 (Version 2)
Quarter: 2025Q4

REPORT INFORMATION
  Report Type: Spontaneous
  Country: US (occurrence: US)
  Receive Date: 20250520
  Receipt Date: 20251015
  Transmission Date: 20260117
  Serious: No
  Sender: LEO PHARM
  Company Number: US-LEO Pharma-379816

PATIENT
  Age: 55 Year
  Sex: Female

DRUGS (1)
  1. ADBRY [Suspect]
     Active Substance: TRALOKINUMAB-LDRM
     Indication: Dermatitis atopic
     Dosage: TREATMENT IS ONGOING
     Route: 058
     Dates: start: 202207

REACTIONS (4)
  - Paraesthesia [Unknown]
  - Hair growth abnormal [Unknown]
  - Skin burning sensation [Unknown]
  - Pruritus [Unknown]
